FAERS Safety Report 9459667 (Version 1)
Quarter: 2013Q3

REPORT INFORMATION
  Report Type: Spontaneous
  Country: FR (occurrence: FR)
  Receive Date: 20130815
  Receipt Date: 20130815
  Transmission Date: 20140515
  Serious: Yes (Hospitalization, Other)
  Sender: FDA-Public Use
  Company Number: PHHY2013FR087820

PATIENT
  Age: 63 Year
  Sex: Female

DRUGS (2)
  1. COTAREG [Suspect]
     Indication: HYPERTENSION
     Dosage: UNK UKN, UNK
     Dates: end: 201208
  2. OPTIJECT [Suspect]
     Indication: PROPHYLAXIS
     Dosage: 350 MG D?IODINE/ML
     Dates: start: 201207

REACTIONS (1)
  - Pustular psoriasis [Recovered/Resolved]
